FAERS Safety Report 14665622 (Version 1)
Quarter: 2018Q1

REPORT INFORMATION
  Report Type: Spontaneous
  Country: CA (occurrence: CA)
  Receive Date: 20180321
  Receipt Date: 20180321
  Transmission Date: 20180509
  Serious: Yes (Life-Threatening)
  Sender: FDA-Public Use
  Company Number: CA-ALLERGAN-1815261US

PATIENT
  Age: 26 Year
  Sex: Female

DRUGS (1)
  1. ESCITALOPRAM OXALATE - BP [Suspect]
     Active Substance: ESCITALOPRAM OXALATE
     Indication: DEPRESSION
     Dosage: UNK, QD
     Route: 048

REACTIONS (3)
  - Suicidal ideation [Recovered/Resolved]
  - Sexual dysfunction [Recovered/Resolved]
  - Depressive symptom [Recovered/Resolved]
